FAERS Safety Report 8422462-5 (Version None)
Quarter: 2012Q2

REPORT INFORMATION
  Report Type: 
  Country: None (occurrence: None)
  Receive Date: 20120608
  Receipt Date: 20120606
  Transmission Date: 20120825
  Serious: Yes (Other)
  Sender: FDA-Public Use
  Company Number: US-PFIZER INC-2012132660

PATIENT
  Sex: Female
  Weight: 86.2 kg

DRUGS (4)
  1. CLONAZEPAM [Concomitant]
     Dosage: UNK
  2. PROTONIX [Suspect]
     Indication: DYSPEPSIA
     Dosage: 40 MG, 2X/DAY
     Route: 048
  3. LEVOTHYROXINE [Concomitant]
     Indication: HYPOTHYROIDISM
     Dosage: UNK
  4. AMITRIPTYLINE [Concomitant]
     Dosage: UNK

REACTIONS (1)
  - BARRETT'S OESOPHAGUS [None]
